FAERS Safety Report 7544573-9 (Version None)
Quarter: 2011Q2

REPORT INFORMATION
  Report Type: 
  Country: None (occurrence: None)
  Receive Date: 20110614
  Receipt Date: 20110610
  Transmission Date: 20111010
  Serious: Yes (Other)
  Sender: FDA-Public Use
  Company Number: US-BRISTOL-MYERS SQUIBB COMPANY-15054687

PATIENT
  Age: 56 Year
  Sex: Female
  Weight: 97 kg

DRUGS (4)
  1. ERBITUX [Suspect]
     Indication: ANAL CANCER
     Dosage: RECENT DOSE-7OCT08
     Route: 042
     Dates: start: 20081007
  2. RADIATION THERAPY [Suspect]
     Indication: ANAL CANCER
     Dosage: 1DF=2700GY NO.FRACTNS-25 ELAPSED DYS:13
     Dates: start: 20081103
  3. CISPLATIN [Suspect]
     Indication: ANAL CANCER
     Dates: start: 20081013, end: 20081013
  4. FLUOROURACIL [Suspect]
     Indication: ANAL CANCER
     Dates: start: 20081013, end: 20081017

REACTIONS (1)
  - DERMATITIS [None]
